FAERS Safety Report 5168262-3 (Version None)
Quarter: 2006Q4

REPORT INFORMATION
  Report Type: 
  Country: None (occurrence: None)
  Receive Date: 20061201
  Receipt Date: 20061122
  Transmission Date: 20070319
  Serious: Yes (Other)
  Sender: FDA-Public Use
  Company Number: 144-20785-06111226

PATIENT
  Age: 46 Year
  Sex: Female

DRUGS (4)
  1. THALIDOMIDE [Suspect]
     Indication: CUTANEOUS LUPUS ERYTHEMATOSUS
     Dosage: 50 MG, 1 IN 1 D, ORAL
     Route: 048
     Dates: start: 20060726, end: 20060729
  2. PREDNISONE TAB [Concomitant]
  3. HYDROXYCHLOROQUINE SULFATE [Concomitant]
  4. ISOTRETINOIN [Concomitant]

REACTIONS (3)
  - DRUG INTERACTION [None]
  - RASH ERYTHEMATOUS [None]
  - SKIN LESION [None]
